FAERS Safety Report 7252895 (Version 3)
Quarter: 2020Q3

REPORT INFORMATION
  Report Type: Report from Study
  Country: NL (occurrence: NL)
  Receive Date: 20100122
  Receipt Date: 20110214
  Transmission Date: 20201104
  Serious: Yes (Hospitalization)
  Sender: FDA-Public Use
  Company Number: NL-JNJFOC-20100105079

PATIENT
  Age: 22 Year
  Sex: Male
  Weight: 81.2 kg

DRUGS (4)
  1. USTEKINUMAB [Suspect]
     Active Substance: USTEKINUMAB
     Indication: CROHN^S DISEASE
     Route: 042
  2. USTEKINUMAB [Suspect]
     Active Substance: USTEKINUMAB
     Route: 042
  3. PLACEBO [Suspect]
     Active Substance: UNSPECIFIED INGREDIENT
     Route: 058
  4. PLACEBO [Suspect]
     Active Substance: UNSPECIFIED INGREDIENT
     Indication: CROHN^S DISEASE
     Route: 058

REACTIONS (1)
  - Pyrexia [Recovered/Resolved]

NARRATIVE: CASE EVENT DATE: 20100111
